FAERS Safety Report 18991425 (Version 1)
Quarter: 2021Q1

REPORT INFORMATION
  Report Type: Report from Study
  Country: US (occurrence: US)
  Receive Date: 20210310
  Receipt Date: 20210310
  Transmission Date: 20210420
  Serious: Yes (Hospitalization, Other)
  Sender: FDA-Public Use
  Company Number: US-BRISTOL-MYERS SQUIBB COMPANY-BMS-2021-019516

PATIENT
  Sex: Female
  Weight: 87 kg

DRUGS (9)
  1. VITAMIN D3 [Concomitant]
     Active Substance: CHOLECALCIFEROL
     Indication: THYROID FUNCTION TEST ABNORMAL
     Dosage: 50000 EVERY FRIDAY
     Route: 065
  2. WARFARIN SODIUM. [Suspect]
     Active Substance: WARFARIN SODIUM
     Indication: COAGULATION FACTOR V LEVEL ABNORMAL
     Dosage: 5MG AND 1MG TABLETS; FREQUENCY:ONCE A DAY, SAME TIME EVERY DAY, WITHIN 30 MINUTES OF 1545
     Route: 048
     Dates: start: 2005
  3. FOLIC ACID. [Concomitant]
     Active Substance: FOLIC ACID
     Indication: BLOOD DISORDER
     Dosage: 1 MILLIGRAM; REQUESTER STATED THAT SHE RUNS LOW ON THIS
     Route: 065
  4. MAGNESIUM [Concomitant]
     Active Substance: MAGNESIUM
     Indication: PRODUCT USED FOR UNKNOWN INDICATION
     Dosage: 250 MILLIGRAM, QD
     Route: 065
  5. LEVOTHYROXINE. [Concomitant]
     Active Substance: LEVOTHYROXINE
     Indication: THYROID FUNCTION TEST ABNORMAL
     Dosage: MONDAY  THROUGH SATURDAY 88MG
     Route: 065
  6. WARFARIN SODIUM. [Suspect]
     Active Substance: WARFARIN SODIUM
     Indication: METHYLENETETRAHYDROFOLATE REDUCTASE DEFICIENCY
  7. DIAZEPAM. [Concomitant]
     Active Substance: DIAZEPAM
     Indication: BALANCE DISORDER
     Dosage: 10 MILLIGRAM
     Route: 065
     Dates: start: 2005
  8. DIAZEPAM. [Concomitant]
     Active Substance: DIAZEPAM
     Indication: MUSCLE TIGHTNESS
     Dosage: 5 MILLIGRAM; IN THE EVENING
     Route: 065
  9. CALCIUM [Concomitant]
     Active Substance: CALCIUM
     Indication: PRODUCT USED FOR UNKNOWN INDICATION
     Dosage: 300 MILLIGRAM

REACTIONS (5)
  - Haemorrhage [Unknown]
  - International normalised ratio fluctuation [Unknown]
  - Intentional product use issue [Unknown]
  - Balance disorder [Unknown]
  - Gallbladder disorder [Unknown]

NARRATIVE: CASE EVENT DATE: 2016
